FAERS Safety Report 15702817 (Version 1)
Quarter: 2018Q4

REPORT INFORMATION
  Report Type: Spontaneous
  Country: SE (occurrence: SE)
  Receive Date: 20181210
  Receipt Date: 20181210
  Transmission Date: 20190205
  Serious: Yes (Other)
  Sender: FDA-Public Use
  Company Number: SE-TEVA-2018-SE-983545

PATIENT
  Age: 39 Year

DRUGS (1)
  1. ESCITALOPRAM TEVA [Suspect]
     Active Substance: ESCITALOPRAM OXALATE
     Indication: DEPRESSION
     Route: 048
     Dates: start: 201807, end: 201807

REACTIONS (2)
  - Intentional self-injury [Unknown]
  - Suicide attempt [Unknown]

NARRATIVE: CASE EVENT DATE: 201807
